FAERS Safety Report 4408191-3 (Version None)
Quarter: 2004Q3

REPORT INFORMATION
  Report Type: 
  Country: None (occurrence: None)
  Receive Date: 20040722
  Receipt Date: 20040713
  Transmission Date: 20050211
  Serious: Yes (Hospitalization)
  Sender: FDA-Public Use
  Company Number: PL-JNJFOC-20040703357

PATIENT
  Age: 24 Year
  Sex: Male

DRUGS (1)
  1. PARACETAMOL (PARACETAMOL) TABLETS [Suspect]
     Indication: SUICIDE ATTEMPT
     Dosage: 24 G, 1 IN 1 TOTAL, ORAL
     Route: 048

REACTIONS (19)
  - ABDOMINAL PAIN [None]
  - BACK PAIN [None]
  - BLOOD PRESSURE INCREASED [None]
  - BLOOD SODIUM DECREASED [None]
  - DISORIENTATION [None]
  - DRUG TOXICITY [None]
  - EYELID OEDEMA [None]
  - FEELING ABNORMAL [None]
  - HAEMODIALYSIS [None]
  - HEPATOMEGALY [None]
  - OCULAR ICTERUS [None]
  - PROTHROMBIN TIME PROLONGED [None]
  - PRURITUS [None]
  - RED BLOOD CELLS URINE [None]
  - RENAL DISORDER [None]
  - RENAL FAILURE [None]
  - SUICIDE ATTEMPT [None]
  - WEIGHT INCREASED [None]
  - WHITE BLOOD CELLS URINE POSITIVE [None]
